FAERS Safety Report 5519582-1 (Version None)
Quarter: 2007Q4

REPORT INFORMATION
  Report Type: 
  Country: None (occurrence: None)
  Receive Date: 20071116
  Receipt Date: 20071108
  Transmission Date: 20080405
  Serious: Yes (Other)
  Sender: FDA-Public Use
  Company Number: US-ELI_LILLY_AND_COMPANY-US200710005323

PATIENT
  Age: 73 Year
  Sex: Female

DRUGS (11)
  1. BYETTA [Suspect]
     Dosage: 5 UG, UNKNOWN
     Dates: start: 20070122, end: 20070312
  2. BYETTA [Suspect]
     Dosage: 10 UG, UNKNOWN
     Dates: start: 20070312, end: 20070905
  3. METFORMIN HCL [Concomitant]
     Indication: DIABETES MELLITUS
     Dosage: 1000 MG, 2/D
     Route: 048
  4. SIMVASTATIN [Concomitant]
     Indication: HYPERLIPIDAEMIA
     Dosage: 20 MG, UNK
     Route: 048
  5. LISINOPRIL HYDROCHLORTHIAZID [Concomitant]
     Indication: HYPERTENSION
     Route: 048
  6. AMLODIPINE [Concomitant]
     Indication: HYPERTENSION
     Dosage: 5 MG, UNK
     Route: 048
  7. PREMARIN [Concomitant]
     Indication: MENOPAUSE
     Dosage: 0.3 MG, UNK
  8. CYANOCOBALAMIN W/FOLIC ACID/PYRIDOXINE [Concomitant]
     Route: 048
  9. GABAPENTIN [Concomitant]
     Indication: DIABETIC NEUROPATHY
     Dosage: 100 MG, 2/W
  10. ZOLOFT [Concomitant]
     Indication: DEPRESSION
     Dosage: 5 MG, UNK
  11. MELOXICAM [Concomitant]
     Indication: ARTHRALGIA
     Dosage: 15 MG, UNK

REACTIONS (2)
  - PANCREATIC CARCINOMA [None]
  - WEIGHT DECREASED [None]
